FAERS Safety Report 5716426-X (Version None)
Quarter: 2008Q2

REPORT INFORMATION
  Report Type: 
  Country: None (occurrence: None)
  Receive Date: 20080422
  Receipt Date: 20080407
  Transmission Date: 20081010
  Serious: Yes (Congenital Anomaly)
  Sender: FDA-Public Use
  Company Number: 100#03#2008-01840

PATIENT

DRUGS (11)
  1. ZOFRAN [Suspect]
     Indication: DRUG EXPOSURE DURING PREGNANCY
     Dosage: TRANSPLACENTAL
     Route: 064
     Dates: start: 20070816, end: 20071129
  2. OMEPRAZOLE [Suspect]
     Indication: DRUG EXPOSURE DURING PREGNANCY
     Dosage: 20 MG TRANSPLACENTAL
     Route: 064
  3. FERROUS SULFATE TAB [Suspect]
     Indication: DRUG EXPOSURE DURING PREGNANCY
     Dosage: TRANSPLACENTAL
     Route: 064
     Dates: start: 20071129
  4. FOLIC ACID [Suspect]
     Indication: DRUG EXPOSURE DURING PREGNANCY
     Dosage: TRANSPLACENTAL
     Route: 064
     Dates: start: 20071129
  5. GAVISCON [Suspect]
     Indication: DRUG EXPOSURE DURING PREGNANCY
     Dosage: 250 ML ONCE DAILY,  TRANSPLACENTAL
     Route: 064
     Dates: start: 20071005
  6. PROMETHAZINE [Suspect]
     Indication: DRUG EXPOSURE DURING PREGNANCY
     Dosage: 25 MG TRANSPLACENTAL
     Route: 064
     Dates: start: 20070727
  7. PROCHLORPERAZINE [Suspect]
     Indication: DRUG EXPOSURE DURING PREGNANCY
     Dosage: 3 MG ONCE DAILY TRANSPLACENTAL
     Route: 064
  8. FLUOXETINE [Suspect]
     Indication: DRUG EXPOSURE DURING PREGNANCY
     Dosage: 20 MG ONCE DAILY TRANSPLACENTAL
     Route: 064
     Dates: start: 20070312, end: 20070909
  9. GLYCEROL SUPPOSITORIES (GLYCEROL) [Suspect]
     Indication: DRUG EXPOSURE DURING PREGNANCY
     Dosage: TRANSPLACENTAL
     Route: 064
     Dates: start: 20070905
  10. PROCHLORPERAZINE [Suspect]
     Indication: DRUG EXPOSURE DURING PREGNANCY
     Dosage: 5 MG ONCE DAILY TRANSPLACENTAL
     Route: 064
     Dates: start: 20070529
  11. VOLTAROL (DICLOFENAC) [Suspect]
     Indication: DRUG EXPOSURE DURING PREGNANCY
     Dosage: 50 MG ONCE DAILY TRANSPLACENTAL
     Route: 064
     Dates: start: 20070710

REACTIONS (2)
  - MATERNAL DRUGS AFFECTING FOETUS [None]
  - TALIPES [None]
